FAERS Safety Report 11498416 (Version 1)
Quarter: 2015Q3

REPORT INFORMATION
  Report Type: Spontaneous
  Country: CN (occurrence: CN)
  Receive Date: 20150911
  Receipt Date: 20150911
  Transmission Date: 20151125
  Serious: Yes (Death)
  Sender: FDA-Public Use
  Company Number: CN-B.I. PHARMACEUTICALS,INC./RIDGEFIELD-2015-BI-49632BI

PATIENT
  Age: 47 Year
  Sex: Female

DRUGS (2)
  1. PERSANTIN [Suspect]
     Active Substance: DIPYRIDAMOLE
     Indication: MALIGNANT ATROPHIC PAPULOSIS
     Dosage: 100 MG
     Route: 065
  2. ASPIRIN. [Concomitant]
     Active Substance: ASPIRIN
     Indication: MALIGNANT ATROPHIC PAPULOSIS
     Dosage: 100 MG
     Route: 065

REACTIONS (1)
  - Gastrointestinal haemorrhage [Fatal]
